FAERS Safety Report 18528224 (Version 1)
Quarter: 2020Q4

REPORT INFORMATION
  Report Type: Report from Study
  Country: None (occurrence: US)
  Receive Date: 20201120
  Receipt Date: 20201120
  Transmission Date: 20210114
  Serious: Yes (Hospitalization)
  Sender: FDA-Public Use
  Company Number: US-ABBVIE-20K-163-3658329-00

PATIENT
  Age: 94 Year
  Sex: Female

DRUGS (1)
  1. IMBRUVICA [Suspect]
     Active Substance: IBRUTINIB
     Indication: CHRONIC LYMPHOCYTIC LEUKAEMIA
     Route: 048
     Dates: start: 20180415, end: 20201106

REACTIONS (3)
  - Kidney infection [Recovering/Resolving]
  - Dizziness [Recovering/Resolving]
  - Stent placement [Recovering/Resolving]

NARRATIVE: CASE EVENT DATE: 20201106
